FAERS Safety Report 6528231-5 (Version None)
Quarter: 2010Q1

REPORT INFORMATION
  Report Type: 
  Country: None (occurrence: None)
  Receive Date: 20100106
  Receipt Date: 20091225
  Transmission Date: 20100710
  Serious: Yes (Hospitalization)
  Sender: FDA-Public Use
  Company Number: JP-BAYER-200910899BYL

PATIENT
  Sex: Male
  Weight: 51 kg

DRUGS (12)
  1. NEXAVAR [Suspect]
     Indication: RENAL CELL CARCINOMA
     Dosage: UNIT DOSE: 200 MG
     Route: 048
     Dates: start: 20090910
  2. NEXAVAR [Suspect]
     Dosage: UNIT DOSE: 200 MG
     Route: 048
     Dates: start: 20090309
  3. NEXAVAR [Suspect]
     Dosage: UNIT DOSE: 200 MG
     Route: 048
     Dates: start: 20090605, end: 20090723
  4. NEXAVAR [Suspect]
     Dosage: UNIT DOSE: 200 MG
     Route: 048
     Dates: start: 20090216, end: 20090227
  5. NEXAVAR [Suspect]
     Dosage: UNIT DOSE: 200 MG
     Route: 048
     Dates: start: 20090523, end: 20090604
  6. NEXAVAR [Suspect]
     Dosage: UNIT DOSE: 200 MG
     Route: 048
     Dates: start: 20090724, end: 20090909
  7. OMEPRAL [Concomitant]
     Route: 048
     Dates: start: 20090216
  8. MAGLAX [Concomitant]
     Route: 048
     Dates: start: 20090216
  9. ONEALFA [Concomitant]
     Route: 048
     Dates: start: 20090216
  10. THYRADIN S [Concomitant]
     Route: 048
     Dates: start: 20090216
  11. ZYLORIC [Concomitant]
     Route: 048
     Dates: start: 20090302, end: 20090313
  12. OXYCONTIN [Concomitant]
     Route: 048
     Dates: start: 20090216

REACTIONS (3)
  - C-REACTIVE PROTEIN INCREASED [None]
  - DIARRHOEA [None]
  - PYREXIA [None]
